FAERS Safety Report 5394815-3 (Version None)
Quarter: 2007Q3

REPORT INFORMATION
  Report Type: 
  Country: None (occurrence: None)
  Receive Date: 20070723
  Receipt Date: 20051201
  Transmission Date: 20080115
  Serious: Yes (Hospitalization)
  Sender: FDA-Public Use
  Company Number: US-PFIZER INC-2004208555US

PATIENT
  Sex: Male
  Weight: 1116.3 kg

DRUGS (12)
  1. CELECOXIB [Suspect]
     Indication: COLON CANCER
     Route: 048
     Dates: start: 20040406, end: 20040707
  2. IRINOTECAN HCL [Suspect]
     Indication: COLON CANCER
     Route: 042
     Dates: start: 20040406, end: 20040629
  3. FLUOROURACIL [Suspect]
     Indication: COLON CANCER
     Route: 042
     Dates: start: 20040406, end: 20040629
  4. FLUOROURACIL [Suspect]
     Route: 042
  5. LEUCOVORIN CALCIUM [Suspect]
  6. COREG [Concomitant]
     Indication: HYPERTENSION
     Route: 048
  7. SOTALOL HYDROCHLORIDE [Concomitant]
     Indication: HYPERTENSION
     Route: 048
  8. COZAAR [Concomitant]
     Indication: HYPERTENSION
     Route: 048
  9. ZOFRAN [Concomitant]
     Indication: NAUSEA
     Route: 048
     Dates: start: 20040406
  10. SERZONE [Concomitant]
     Indication: DEPRESSION
     Route: 048
  11. TYLENOL (CAPLET) [Concomitant]
     Indication: PYREXIA
     Route: 048
  12. AMBIEN [Concomitant]
     Indication: INSOMNIA
     Route: 048

REACTIONS (1)
  - CHEST PAIN [None]
